FAERS Safety Report 25968615 (Version 1)
Quarter: 2025Q4

REPORT INFORMATION
  Report Type: Spontaneous
  Country: US (occurrence: US)
  Receive Date: 20251028
  Receipt Date: 20251028
  Transmission Date: 20260118
  Serious: Yes (Life-Threatening, Hospitalization)
  Sender: MYLAN
  Company Number: US-MYLANLABS-2025M1091380

PATIENT
  Age: 7 Decade
  Sex: Female

DRUGS (28)
  1. HYDROCORTISONE [Suspect]
     Active Substance: HYDROCORTISONE
     Indication: Anaphylaxis prophylaxis
     Dosage: 200 MILLIGRAM
  2. HYDROCORTISONE [Suspect]
     Active Substance: HYDROCORTISONE
     Dosage: 200 MILLIGRAM
     Route: 042
  3. HYDROCORTISONE [Suspect]
     Active Substance: HYDROCORTISONE
     Dosage: 200 MILLIGRAM
     Route: 042
  4. HYDROCORTISONE [Suspect]
     Active Substance: HYDROCORTISONE
     Dosage: 200 MILLIGRAM
  5. EPINEPHRINE [Suspect]
     Active Substance: EPINEPHRINE
     Indication: Anaphylactoid reaction
     Dosage: 0.3 MILLIGRAM
  6. EPINEPHRINE [Suspect]
     Active Substance: EPINEPHRINE
     Dosage: 0.3 MILLIGRAM
     Route: 030
  7. EPINEPHRINE [Suspect]
     Active Substance: EPINEPHRINE
     Dosage: 0.3 MILLIGRAM
     Route: 030
  8. EPINEPHRINE [Suspect]
     Active Substance: EPINEPHRINE
     Dosage: 0.3 MILLIGRAM
  9. DIPHENHYDRAMINE [Suspect]
     Active Substance: DIPHENHYDRAMINE
     Indication: Anaphylaxis prophylaxis
     Dosage: 50 MILLIGRAM
  10. DIPHENHYDRAMINE [Suspect]
     Active Substance: DIPHENHYDRAMINE
     Dosage: 50 MILLIGRAM
     Route: 042
  11. DIPHENHYDRAMINE [Suspect]
     Active Substance: DIPHENHYDRAMINE
     Dosage: 50 MILLIGRAM
     Route: 042
  12. DIPHENHYDRAMINE [Suspect]
     Active Substance: DIPHENHYDRAMINE
     Dosage: 50 MILLIGRAM
  13. TENECTEPLASE [Suspect]
     Active Substance: TENECTEPLASE
     Indication: Acute myocardial infarction
     Dosage: 50 MILLIGRAM
  14. TENECTEPLASE [Suspect]
     Active Substance: TENECTEPLASE
     Dosage: 50 MILLIGRAM
     Route: 042
  15. TENECTEPLASE [Suspect]
     Active Substance: TENECTEPLASE
     Dosage: 50 MILLIGRAM
     Route: 042
  16. TENECTEPLASE [Suspect]
     Active Substance: TENECTEPLASE
     Dosage: 50 MILLIGRAM
  17. HEPARIN [Suspect]
     Active Substance: HEPARIN SODIUM
     Indication: Acute myocardial infarction
     Dosage: UNK, DRIP
  18. HEPARIN [Suspect]
     Active Substance: HEPARIN SODIUM
     Dosage: UNK, DRIP
     Route: 042
  19. HEPARIN [Suspect]
     Active Substance: HEPARIN SODIUM
     Dosage: UNK, DRIP
     Route: 042
  20. HEPARIN [Suspect]
     Active Substance: HEPARIN SODIUM
     Dosage: UNK, DRIP
  21. ASPIRIN [Suspect]
     Active Substance: ASPIRIN
     Indication: Acute myocardial infarction
     Dosage: 324 MILLIGRAM
  22. ASPIRIN [Suspect]
     Active Substance: ASPIRIN
     Dosage: 324 MILLIGRAM
     Route: 048
  23. ASPIRIN [Suspect]
     Active Substance: ASPIRIN
     Dosage: 324 MILLIGRAM
     Route: 048
  24. ASPIRIN [Suspect]
     Active Substance: ASPIRIN
     Dosage: 324 MILLIGRAM
  25. CLOPIDOGREL [Suspect]
     Active Substance: CLOPIDOGREL BISULFATE
     Indication: Acute myocardial infarction
     Dosage: 300 MILLIGRAM
  26. CLOPIDOGREL [Suspect]
     Active Substance: CLOPIDOGREL BISULFATE
     Dosage: 300 MILLIGRAM
     Route: 048
  27. CLOPIDOGREL [Suspect]
     Active Substance: CLOPIDOGREL BISULFATE
     Dosage: 300 MILLIGRAM
     Route: 048
  28. CLOPIDOGREL [Suspect]
     Active Substance: CLOPIDOGREL BISULFATE
     Dosage: 300 MILLIGRAM

REACTIONS (2)
  - Cardiogenic shock [Unknown]
  - Drug ineffective [Unknown]
